FAERS Safety Report 24976520 (Version 1)
Quarter: 2025Q1

REPORT INFORMATION
  Report Type: Spontaneous
  Country: TH (occurrence: TH)
  Receive Date: 20250217
  Receipt Date: 20250217
  Transmission Date: 20250409
  Serious: Yes (Life-Threatening)
  Sender: GUERBET
  Company Number: TH-GUERBETG-TH-20250008

PATIENT
  Age: 53 Year
  Sex: Female

DRUGS (1)
  1. OPTIRAY 350 [Suspect]
     Active Substance: IOVERSOL
     Indication: Computerised tomogram heart
     Route: 042
     Dates: start: 20240126, end: 20240126

REACTIONS (2)
  - Chest discomfort [Recovered/Resolved]
  - Dyspnoea [Recovered/Resolved]

NARRATIVE: CASE EVENT DATE: 20240126
